FAERS Safety Report 7405797-4 (Version None)
Quarter: 2011Q2

REPORT INFORMATION
  Report Type: 
  Country: None (occurrence: None)
  Receive Date: 20110411
  Receipt Date: 20110331
  Transmission Date: 20111010
  Serious: Yes (Other)
  Sender: FDA-Public Use
  Company Number: CA-BAXTER-2011BH009540

PATIENT
  Age: 62 Year
  Sex: Female

DRUGS (2)
  1. DIANEAL [Suspect]
     Indication: PERITONEAL DIALYSIS
     Route: 033
     Dates: start: 20110329
  2. DIANEAL [Suspect]
     Route: 033

REACTIONS (7)
  - ABDOMINAL PAIN [None]
  - CHILLS [None]
  - ABDOMINAL PAIN UPPER [None]
  - BURNING SENSATION [None]
  - DISCOMFORT [None]
  - DIARRHOEA [None]
  - MALAISE [None]
